FAERS Safety Report 4415023-6 (Version None)
Quarter: 2004Q3

REPORT INFORMATION
  Report Type: 
  Country: None (occurrence: None)
  Receive Date: 20040803
  Receipt Date: 20040803
  Transmission Date: 20050211
  Serious: Yes (Other)
  Sender: FDA-Public Use
  Company Number: None

PATIENT
  Age: 41 Year
  Sex: Male
  Weight: 88.4514 kg

DRUGS (7)
  1. OXYCODONE 80 MG (GENERIC) [Suspect]
     Indication: ABDOMINAL PAIN
     Dosage: 2 PO BID
     Route: 048
     Dates: start: 20040717
  2. ELAVIL [Concomitant]
  3. NEURONTIN [Concomitant]
  4. FLOVENT [Concomitant]
  5. FORADIL [Concomitant]
  6. NEXIUM [Concomitant]
  7. ATROVENT [Concomitant]

REACTIONS (1)
  - DRUG INEFFECTIVE [None]
